FAERS Safety Report 7626631 (Version 4)
Quarter: 2014Q2

REPORT INFORMATION
  Report Type: Spontaneous
  Country: US (occurrence: US)
  Receive Date: 20101013
  Receipt Date: 20140513
  Transmission Date: 20141212
  Serious: No
  Sender: FDA-Public Use
  Company Number: US-ASTRAZENECA-2010SE18721

PATIENT
  Age: 82 Year
  Sex: Female

DRUGS (9)
  1. PULMICORT [Suspect]
     Route: 055
     Dates: start: 2008, end: 20100422
  2. PULMICORT [Suspect]
     Route: 055
     Dates: start: 2014
  3. SYMBICORT [Suspect]
     Dosage: 160/4.5 UG TWO PUFFS TWICE A DAY
     Route: 055
     Dates: start: 20100422
  4. CRESTOR [Suspect]
     Route: 048
     Dates: start: 20061201
  5. CRESTOR [Suspect]
     Route: 048
  6. PREDNISONE [Concomitant]
  7. IPRATROPIUM BROMIDE [Concomitant]
  8. MUCINEX [Concomitant]
  9. ALBUTEROL [Concomitant]

REACTIONS (8)
  - Choking [Recovering/Resolving]
  - Bacterial infection [Recovering/Resolving]
  - Productive cough [Recovering/Resolving]
  - Pneumonia [Unknown]
  - Dyspepsia [Recovered/Resolved]
  - Cough [Recovering/Resolving]
  - Wheezing [Unknown]
  - Intentional product misuse [Unknown]
